FAERS Safety Report 15268611 (Version 3)
Quarter: 2018Q4

REPORT INFORMATION
  Report Type: Spontaneous
  Country: JP (occurrence: JP)
  Receive Date: 20180812
  Receipt Date: 20181001
  Transmission Date: 20190204
  Serious: Yes (Hospitalization, Disabling, Other)
  Sender: FDA-Public Use
  Company Number: PHJP2018JP012141

PATIENT
  Age: 81 Year
  Sex: Female
  Weight: 51 kg

DRUGS (4)
  1. LENDORMIN [Concomitant]
     Active Substance: BROTIZOLAM
     Indication: INSOMNIA
     Dosage: 0.25 MG, QD
     Route: 048
  2. BYSTAGE [Concomitant]
     Active Substance: IOPAMIDOL
     Indication: SCAN WITH CONTRAST
     Dosage: 100 ML, UNK
     Route: 065
     Dates: start: 20170829
  3. OMNIPAQUE [Concomitant]
     Active Substance: IOHEXOL
     Indication: SCAN WITH CONTRAST
     Dosage: 200 ML, UNK
     Route: 065
     Dates: start: 20171006
  4. TASIGNA [Suspect]
     Active Substance: NILOTINIB
     Indication: CHRONIC MYELOID LEUKAEMIA
     Dosage: 150 MG, QD
     Route: 048

REACTIONS (9)
  - Peripheral arterial occlusive disease [Not Recovered/Not Resolved]
  - Pain [Unknown]
  - Intermittent claudication [Unknown]
  - Oedema peripheral [Unknown]
  - Cholinergic syndrome [Recovered/Resolved]
  - Arteriosclerosis coronary artery [Recovered/Resolved]
  - Pain in extremity [Unknown]
  - Hypoaesthesia [Unknown]
  - Muscular weakness [Unknown]

NARRATIVE: CASE EVENT DATE: 20170614
